FAERS Safety Report 11175625 (Version 1)
Quarter: 2015Q2

REPORT INFORMATION
  Report Type: Report from Study
  Country: FR (occurrence: FR)
  Receive Date: 20150609
  Receipt Date: 20150609
  Transmission Date: 20150821
  Serious: Yes (Hospitalization)
  Sender: FDA-Public Use
  Company Number: FR-GLAXOSMITHKLINE-FR2015GSK079365

PATIENT
  Age: 75 Year
  Sex: Female

DRUGS (6)
  1. VASTEN [Concomitant]
     Active Substance: PRAVASTATIN SODIUM
  2. PLAVIX [Concomitant]
     Active Substance: CLOPIDOGREL BISULFATE
  3. OMEGA-3-ACID ETHYL ESTERS. [Suspect]
     Active Substance: OMEGA-3-ACID ETHYL ESTERS
     Indication: ISCHAEMIC HEART DISEASE PROPHYLAXIS
     Dosage: UNK
     Route: 048
     Dates: start: 20080717
  4. KARDEGIC [Concomitant]
     Active Substance: ASPIRIN LYSINE
  5. SECTRAL [Concomitant]
     Active Substance: ACEBUTOLOL HYDROCHLORIDE
  6. COVERSYL [Concomitant]
     Active Substance: PERINDOPRIL

REACTIONS (1)
  - Alopecia [Unknown]

NARRATIVE: CASE EVENT DATE: 20090624
